FAERS Safety Report 20154958 (Version 1)
Quarter: 2021Q4

REPORT INFORMATION
  Report Type: Spontaneous
  Country: US (occurrence: US)
  Receive Date: 20211207
  Receipt Date: 20211207
  Transmission Date: 20220303
  Serious: No
  Sender: FDA-Public Use
  Company Number: US-MICRO LABS LIMITED-ML2021-02570

PATIENT

DRUGS (1)
  1. TRAVOPROST [Suspect]
     Active Substance: TRAVOPROST

REACTIONS (2)
  - Circumstance or information capable of leading to medication error [Unknown]
  - Product container issue [Unknown]
